FAERS Safety Report 6091092-5 (Version None)
Quarter: 2009Q1

REPORT INFORMATION
  Report Type: 
  Country: None (occurrence: None)
  Receive Date: 20090225
  Receipt Date: 20090213
  Transmission Date: 20090719
  Serious: Yes (Hospitalization, Disabling, Other)
  Sender: FDA-Public Use
  Company Number: NL-JNJFOC-20090201170

PATIENT
  Age: 57 Year
  Sex: Female

DRUGS (1)
  1. TOPAMAX [Suspect]
     Indication: EPILEPSY

REACTIONS (10)
  - AREFLEXIA [None]
  - BALANCE DISORDER [None]
  - CHEST DISCOMFORT [None]
  - DYSKINESIA [None]
  - EXPRESSIVE LANGUAGE DISORDER [None]
  - FATIGUE [None]
  - GAIT DISTURBANCE [None]
  - MUSCULAR WEAKNESS [None]
  - TREMOR [None]
  - WEIGHT DECREASED [None]
